FAERS Safety Report 17380755 (Version 1)
Quarter: 2020Q1

REPORT INFORMATION
  Report Type: Spontaneous
  Country: US (occurrence: US)
  Receive Date: 20200206
  Receipt Date: 20200206
  Transmission Date: 20200409
  Serious: No
  Sender: FDA-Public Use
  Company Number: US-ABBVIE-19K-163-2754906-00

PATIENT
  Age: 28 Year
  Sex: Male
  Weight: 72.64 kg

DRUGS (3)
  1. LEXAPRO [Concomitant]
     Active Substance: ESCITALOPRAM OXALATE
     Indication: DEPRESSION
  2. XANAX [Concomitant]
     Active Substance: ALPRAZOLAM
     Indication: ANXIETY
  3. HUMIRA [Suspect]
     Active Substance: ADALIMUMAB
     Indication: HIDRADENITIS
     Route: 058
     Dates: start: 20190416, end: 20190416

REACTIONS (7)
  - Injection site vesicles [Recovered/Resolved]
  - Wrong technique in product usage process [Unknown]
  - Contusion [Unknown]
  - Fatigue [Unknown]
  - Incorrect dose administered [Unknown]
  - Injection site induration [Recovered/Resolved]
  - Productive cough [Unknown]

NARRATIVE: CASE EVENT DATE: 201904
